FAERS Safety Report 6329075-X (Version None)
Quarter: 2009Q3

REPORT INFORMATION
  Report Type: 
  Country: None (occurrence: None)
  Receive Date: 20090826
  Receipt Date: 20090821
  Transmission Date: 20100115
  Serious: Yes (Death)
  Sender: FDA-Public Use
  Company Number: PHEH2009US08970

PATIENT

DRUGS (11)
  1. EXJADE [Suspect]
     Indication: MYELODYSPLASTIC SYNDROME
     Dosage: 500 MG, QD
     Route: 048
     Dates: start: 20080601, end: 20090701
  2. EXJADE [Suspect]
     Indication: IRON OVERLOAD
  3. BUMEX [Concomitant]
  4. HYDRALAZINE HCL [Concomitant]
  5. ACCUPRIL [Concomitant]
  6. PLAVIX [Concomitant]
  7. ASPIRIN [Concomitant]
  8. ATENOLOL [Concomitant]
  9. NORVASC [Concomitant]
  10. HYDROCHLOROTHIAZIDE [Concomitant]
  11. LORCET-HD [Concomitant]

REACTIONS (2)
  - NAUSEA [None]
  - RENAL FAILURE ACUTE [None]
